FAERS Safety Report 22006908 (Version 1)
Quarter: 2023Q1

REPORT INFORMATION
  Report Type: Spontaneous
  Country: US (occurrence: US)
  Receive Date: 20230217
  Receipt Date: 20230217
  Transmission Date: 20230417
  Serious: No
  Sender: FDA-Public Use
  Company Number: US-SA-SAC20230216001274

PATIENT
  Sex: Female

DRUGS (14)
  1. AUBAGIO [Suspect]
     Active Substance: TERIFLUNOMIDE
     Indication: Multiple sclerosis
     Dosage: 14 MG, QD
     Route: 048
  2. LISINOPRIL [Concomitant]
     Active Substance: LISINOPRIL
  3. BACLOFEN [Concomitant]
     Active Substance: BACLOFEN
  4. BUPROPION [Concomitant]
     Active Substance: BUPROPION
  5. DEXILANT [Concomitant]
     Active Substance: DEXLANSOPRAZOLE
  6. FUROSEMIDE [Concomitant]
     Active Substance: FUROSEMIDE
  7. GABAPENTIN [Concomitant]
     Active Substance: GABAPENTIN
  8. MELOXICAM [Concomitant]
     Active Substance: MELOXICAM
  9. METOPROLOL [Concomitant]
     Active Substance: METOPROLOL
  10. MONTELUKAST [Concomitant]
     Active Substance: MONTELUKAST SODIUM
  11. POTASSIUM CHLORIDE [Concomitant]
     Active Substance: POTASSIUM CHLORIDE
  12. RANITIDINE [Concomitant]
     Active Substance: RANITIDINE
  13. SIMVASTATIN [Concomitant]
     Active Substance: SIMVASTATIN
  14. DEXTROAMPHETAMINE [Concomitant]
     Active Substance: DEXTROAMPHETAMINE

REACTIONS (1)
  - Gastroenteritis viral [Not Recovered/Not Resolved]
